FAERS Safety Report 10015978 (Version 2)
Quarter: 2014Q1

REPORT INFORMATION
  Report Type: Report from Study
  Country: NL (occurrence: NL)
  Receive Date: 20140317
  Receipt Date: 20140317
  Transmission Date: 20141002
  Serious: Yes (Hospitalization)
  Sender: FDA-Public Use
  Company Number: NL-BAXTER-2013BAX032727

PATIENT
  Age: 82 Year
  Sex: Female

DRUGS (7)
  1. KIOVIG, 100 MG/ML, OPLOSSING VOOR INFUSIE (30 G/300 ML) [Suspect]
     Indication: POLYNEUROPATHY
     Route: 065
     Dates: start: 20130813
  2. KIOVIG, 100 MG/ML, OPLOSSING VOOR INFUSIE (30 G/300 ML) [Suspect]
     Indication: CHRONIC INFLAMMATORY DEMYELINATING POLYRADICULONEUROPATHY
     Route: 065
     Dates: start: 20130815
  3. KIOVIG, 100 MG/ML, OPLOSSING VOOR INFUSIE (30 G/300 ML) [Suspect]
     Indication: OFF LABEL USE
     Route: 065
     Dates: start: 20081211
  4. KIOVIG, 100 MG/ML, OPLOSSING VOOR INFUSIE (30 G/300 ML) [Suspect]
     Route: 065
     Dates: start: 20090112
  5. KIOVIG, 100 MG/ML, OPLOSSING VOOR INFUSIE (30 G/300 ML) [Suspect]
     Route: 065
     Dates: start: 20090925
  6. KIOVIG, 100 MG/ML, OPLOSSING VOOR INFUSIE (30 G/300 ML) [Suspect]
     Route: 065
     Dates: start: 20090714
  7. KIOVIG, 100 MG/ML, OPLOSSING VOOR INFUSIE (30 G/300 ML) [Suspect]
     Route: 065

REACTIONS (2)
  - Transient ischaemic attack [Recovered/Resolved]
  - Hypertension [Recovering/Resolving]
